FAERS Safety Report 10253778 (Version 9)
Quarter: 2015Q2

REPORT INFORMATION
  Report Type: Report from Study
  Country: US (occurrence: US)
  Receive Date: 20140623
  Receipt Date: 20150415
  Transmission Date: 20150821
  Serious: Yes (Hospitalization, Other)
  Sender: FDA-Public Use
  Company Number: US-SA-2014SA036280

PATIENT
  Age: 63 Year
  Sex: Female
  Weight: 70.31 kg

DRUGS (10)
  1. AUBAGIO [Suspect]
     Active Substance: TERIFLUNOMIDE
     Indication: MULTIPLE SCLEROSIS
     Route: 048
     Dates: start: 20140304
  2. AUBAGIO [Suspect]
     Active Substance: TERIFLUNOMIDE
     Indication: MULTIPLE SCLEROSIS
     Route: 048
     Dates: start: 20140506, end: 20140606
  3. FUROSEMIDE. [Concomitant]
     Active Substance: FUROSEMIDE
     Dosage: 20 MG
     Route: 048
     Dates: start: 20140304
  4. VITAMIN C [Concomitant]
     Active Substance: ASCORBIC ACID
     Dosage: 1000 MG
     Route: 048
     Dates: start: 20140304
  5. CINNAMON OIL [Concomitant]
     Active Substance: CINNAMON OIL
     Dosage: 500 MG
     Route: 048
     Dates: start: 20140304
  6. VITAMIN D3 [Concomitant]
     Active Substance: CHOLECALCIFEROL
     Dosage: 1000 UNITS
     Route: 048
     Dates: start: 20140304
  7. POTASSIUM CHLORIDE. [Concomitant]
     Active Substance: POTASSIUM CHLORIDE
     Dosage: PARENTERAL SOLUTION, 0.45% NACL
     Route: 042
     Dates: start: 20140304
  8. HYDROCHLOROTHIAZIDE/LISINOPRIL [Concomitant]
     Dosage: 20-12.5 MG
     Route: 048
     Dates: start: 20140304
  9. AUBAGIO [Suspect]
     Active Substance: TERIFLUNOMIDE
     Indication: MULTIPLE SCLEROSIS
     Route: 048
     Dates: start: 20140311
  10. AUBAGIO [Suspect]
     Active Substance: TERIFLUNOMIDE
     Indication: MULTIPLE SCLEROSIS
     Route: 048
     Dates: end: 20150206

REACTIONS (31)
  - Nausea [Unknown]
  - Fatigue [Unknown]
  - Decreased appetite [Unknown]
  - Gait disturbance [Unknown]
  - Nasopharyngitis [Unknown]
  - Blood glucose increased [Unknown]
  - Alopecia [Unknown]
  - Malaise [Unknown]
  - Paraesthesia [Unknown]
  - Depression [Recovering/Resolving]
  - Hepatic enzyme abnormal [Recovering/Resolving]
  - Hypersomnia [Unknown]
  - Facial pain [Recovered/Resolved]
  - Anxiety [Recovering/Resolving]
  - Diarrhoea [Unknown]
  - Therapeutic response unexpected [Unknown]
  - Myocardial infarction [Recovering/Resolving]
  - Hypertension [Unknown]
  - Pain in extremity [Recovered/Resolved]
  - Hypopnoea [Unknown]
  - Blood cholesterol abnormal [Recovering/Resolving]
  - Pain in extremity [Unknown]
  - Glycosylated haemoglobin increased [Unknown]
  - Dizziness [Unknown]
  - Fibromyalgia [Recovering/Resolving]
  - Blood pressure decreased [Unknown]
  - Nuclear magnetic resonance imaging abnormal [Unknown]
  - Chest pain [Recovered/Resolved]
  - Myalgia [Unknown]
  - Abdominal pain upper [Unknown]
  - Drug dose omission [Unknown]

NARRATIVE: CASE EVENT DATE: 20140317
